FAERS Safety Report 17622704 (Version 1)
Quarter: 2020Q2

REPORT INFORMATION
  Report Type: Spontaneous
  Country: US (occurrence: US)
  Receive Date: 20200403
  Receipt Date: 20200403
  Transmission Date: 20200713
  Serious: Yes (Disabling)
  Sender: FDA-Public Use
  Company Number: NVSC2020US089827

PATIENT
  Age: 72 Year
  Sex: Female

DRUGS (4)
  1. BEOVU [Suspect]
     Active Substance: BROLUCIZUMAB-DBLL
     Indication: NEOVASCULAR AGE-RELATED MACULAR DEGENERATION
     Dosage: 6 MG, QMO INTO OS (OCULUS SINISTER)
     Route: 047
     Dates: start: 20200131
  2. EYLEA [Suspect]
     Active Substance: AFLIBERCEPT
     Indication: NEOVASCULAR AGE-RELATED MACULAR DEGENERATION
     Route: 065
  3. BEOVU [Suspect]
     Active Substance: BROLUCIZUMAB-DBLL
     Dosage: 6 MG, QMO
     Route: 047
  4. EYLEA [Suspect]
     Active Substance: AFLIBERCEPT
     Dosage: UNK (OCULUS DEXTRUS EYE)
     Route: 065
     Dates: start: 20200226

REACTIONS (3)
  - Eye pain [Not Recovered/Not Resolved]
  - Blindness unilateral [Not Recovered/Not Resolved]
  - Iridocyclitis [Not Recovered/Not Resolved]
